FAERS Safety Report 7187061 (Version 2)
Quarter: 2012Q4

REPORT INFORMATION
  Report Type: 
  Country: CA (occurrence: CA)
  Receive Date: 20091124
  Receipt Date: 20121017
  Transmission Date: 20130627
  Serious: Yes (Hospitalization)
  Sender: FDA-Public Use
  Company Number: PHHY2008CA00839

PATIENT
  Sex: Female

DRUGS (1)
  1. SANDOSTATIN LAR [Suspect]
     Indication: GASTROINTESTINAL STROMAL TUMOUR
     Dosage: 30 mg every 4 weeks
     Route: 030
     Dates: start: 20071011

REACTIONS (5)
  - Gastrointestinal inflammation [Unknown]
  - Abdominal pain [Unknown]
  - Vomiting [Unknown]
  - Intestinal obstruction [Unknown]
  - Flatulence [Unknown]
